FAERS Safety Report 14634980 (Version 4)
Quarter: 2018Q3

REPORT INFORMATION
  Report Type: Spontaneous
  Country: IL (occurrence: IL)
  Receive Date: 20180314
  Receipt Date: 20180808
  Transmission Date: 20181010
  Serious: Yes (Death, Life-Threatening, Hospitalization)
  Sender: FDA-Public Use
  Company Number: IL-CELGENEUS-ISR-20180210057

PATIENT
  Age: 72 Year
  Sex: Male

DRUGS (28)
  1. DIPYRONE [Concomitant]
     Active Substance: DIPYRONE
     Indication: PROPHYLAXIS
     Dosage: 1000 MILLIGRAM
     Route: 048
     Dates: start: 20180206, end: 20180223
  2. SALINE SOLUTION [Concomitant]
     Active Substance: SODIUM CHLORIDE
     Indication: PROPHYLAXIS
     Route: 041
  3. PREGABALIN. [Concomitant]
     Active Substance: PREGABALIN
     Indication: NEUROPATHY PERIPHERAL
     Dosage: 200 MILLIGRAM
     Route: 048
     Dates: start: 20171225, end: 20180107
  4. VENTOLIN [Concomitant]
     Active Substance: ALBUTEROL SULFATE
     Dosage: 1.5 MILLIGRAM/MILLILITERS
     Route: 055
     Dates: start: 20180118
  5. FUROSEMIDE. [Concomitant]
     Active Substance: FUROSEMIDE
     Dosage: 40 MILLIGRAM
     Route: 048
     Dates: start: 20180221, end: 20180224
  6. PREGABALIN. [Concomitant]
     Active Substance: PREGABALIN
     Dosage: 250 MILLIGRAM
     Route: 048
     Dates: start: 20180108, end: 20180113
  7. OXYCODONE/NALOXONE [Concomitant]
     Active Substance: NALOXONE HYDROCHLORIDE\OXYCODONE HYDROCHLORIDE
     Dosage: 60 MILLIGRAM
     Route: 048
     Dates: start: 20180114, end: 20180224
  8. FLIXOTIDE NEBULES [Concomitant]
     Indication: CHRONIC OBSTRUCTIVE PULMONARY DISEASE
     Dosage: 4 MILLIGRAM/MILLILITERS
     Route: 055
     Dates: start: 20180112, end: 20180225
  9. AEROVENT [Concomitant]
     Indication: CHRONIC OBSTRUCTIVE PULMONARY DISEASE
     Dosage: 3 MILLIGRAM/MILLILITERS
     Route: 055
     Dates: start: 20180106, end: 20180129
  10. NEUPOGEN [Concomitant]
     Active Substance: FILGRASTIM
     Dosage: 300 MICROGRAM
     Route: 058
     Dates: start: 20180123, end: 20180128
  11. FUROSEMIDE. [Concomitant]
     Active Substance: FUROSEMIDE
     Dosage: 40 MILLIGRAM
     Route: 048
     Dates: start: 20180210, end: 20180210
  12. VENETOCLAX. [Concomitant]
     Active Substance: VENETOCLAX
     Indication: ACUTE MYELOID LEUKAEMIA
     Route: 065
  13. PREGABALIN. [Concomitant]
     Active Substance: PREGABALIN
     Dosage: 300 MILLIGRAM
     Route: 048
     Dates: start: 20180114, end: 20180224
  14. FUROSEMIDE. [Concomitant]
     Active Substance: FUROSEMIDE
     Dosage: 40 MILLIGRAM
     Route: 048
     Dates: start: 20180226
  15. VANCOMYCIN [Concomitant]
     Active Substance: VANCOMYCIN
     Indication: CLOSTRIDIUM DIFFICILE INFECTION
     Route: 065
     Dates: start: 20180131, end: 20180216
  16. FUROSEMIDE. [Concomitant]
     Active Substance: FUROSEMIDE
     Dosage: 40 MILLIGRAM
     Route: 048
     Dates: start: 20180212, end: 20180212
  17. ALLOPURINOL. [Concomitant]
     Active Substance: ALLOPURINOL
     Indication: PROPHYLAXIS
     Route: 048
  18. OXYCODONE/NALOXONE [Concomitant]
     Active Substance: NALOXONE HYDROCHLORIDE\OXYCODONE HYDROCHLORIDE
     Dosage: 40 MILLIGRAM
     Route: 048
     Dates: start: 20171230, end: 20180113
  19. AEROVENT [Concomitant]
     Dosage: 3 MILLIGRAM/MILLILITERS
     Route: 055
     Dates: start: 20180204
  20. NEUPOGEN [Concomitant]
     Active Substance: FILGRASTIM
     Indication: NEUTROPENIA
     Dosage: 300 MICROGRAM
     Route: 058
     Dates: start: 20180110, end: 20180112
  21. NEUPOGEN [Concomitant]
     Active Substance: FILGRASTIM
     Dosage: 300 MICROGRAM
     Route: 058
     Dates: start: 20180219, end: 20180221
  22. FUROSEMIDE. [Concomitant]
     Active Substance: FUROSEMIDE
     Indication: DIASTOLIC DYSFUNCTION
     Dosage: 40 MILLIGRAM
     Route: 048
     Dates: start: 20180106, end: 20180124
  23. AZACITIDINE. [Suspect]
     Active Substance: AZACITIDINE
     Indication: ACUTE MYELOID LEUKAEMIA
     Dosage: 75 MILLIGRAM/SQ. METER
     Route: 058
     Dates: start: 20180103, end: 20180206
  24. ESOMAPRAZOLE [Concomitant]
     Indication: PROPHYLAXIS
     Dosage: 40 MILLIGRAM
     Route: 048
     Dates: start: 20171225, end: 20180226
  25. AMITRIPTYLINE [Concomitant]
     Active Substance: AMITRIPTYLINE
     Indication: NEUROPATHY PERIPHERAL
     Dosage: 10 MG
     Route: 048
     Dates: start: 20171228, end: 20180224
  26. OXYCODONE/NALOXONE [Concomitant]
     Active Substance: NALOXONE HYDROCHLORIDE\OXYCODONE HYDROCHLORIDE
     Indication: NEUROPATHY PERIPHERAL
     Dosage: 20 MILLIGRAM
     Route: 048
     Dates: start: 20171225, end: 20171229
  27. FLUCONAZOLE. [Concomitant]
     Active Substance: FLUCONAZOLE
     Indication: INFECTION PROPHYLAXIS
     Dosage: 400 MILLIGRAM
     Route: 048
     Dates: start: 20171231, end: 20180224
  28. VENTOLIN [Concomitant]
     Active Substance: ALBUTEROL SULFATE
     Indication: CHRONIC OBSTRUCTIVE PULMONARY DISEASE
     Dosage: 1.5 MILLIGRAM/MILLILITERS
     Route: 055
     Dates: start: 20180105, end: 20180205

REACTIONS (1)
  - Septic shock [Fatal]

NARRATIVE: CASE EVENT DATE: 20180223
